FAERS Safety Report 17770458 (Version 4)
Quarter: 2020Q3

REPORT INFORMATION
  Report Type: Spontaneous
  Country: DE (occurrence: DE)
  Receive Date: 20200512
  Receipt Date: 20200731
  Transmission Date: 20201102
  Serious: Yes (Other)
  Sender: FDA-Public Use
  Company Number: NVSC2020DE127681

PATIENT
  Sex: Female
  Weight: 60 kg

DRUGS (3)
  1. COSENTYX [Suspect]
     Active Substance: SECUKINUMAB
     Indication: PSORIASIS
     Dosage: 300 MG, Q4W
     Route: 058
     Dates: start: 20170707, end: 20200404
  2. DEKRISTOL NEU [Concomitant]
     Indication: VITAMIN D DEFICIENCY
     Dosage: 20000 OT, QW
     Route: 065
  3. L THYROX [Concomitant]
     Active Substance: LEVOTHYROXINE SODIUM
     Indication: HYPOTHYROIDISM
     Dosage: 1 DF, QD (120)
     Route: 065

REACTIONS (4)
  - Inflammatory bowel disease [Unknown]
  - Abdominal pain [Unknown]
  - Colitis microscopic [Recovered/Resolved]
  - Diarrhoea [Unknown]

NARRATIVE: CASE EVENT DATE: 20200304
